FAERS Safety Report 21017967 (Version 1)
Quarter: 2022Q2

REPORT INFORMATION
  Report Type: Spontaneous
  Country: CN (occurrence: CN)
  Receive Date: 20220628
  Receipt Date: 20220628
  Transmission Date: 20220721
  Serious: Yes (Life-Threatening)
  Sender: FDA-Public Use
  Company Number: CN-BAYER-2022A087502

PATIENT
  Age: 52 Year
  Sex: Female

DRUGS (4)
  1. AVELOX [Suspect]
     Active Substance: MOXIFLOXACIN HYDROCHLORIDE
     Indication: Pneumonia
     Dosage: 200 MG, QD
     Route: 041
     Dates: start: 20220119, end: 20220123
  2. AVELOX [Suspect]
     Active Substance: MOXIFLOXACIN HYDROCHLORIDE
     Indication: Pneumonia
     Dosage: 200 MG, QD
     Route: 041
     Dates: start: 20220130, end: 20220205
  3. AVELOX [Suspect]
     Active Substance: MOXIFLOXACIN HYDROCHLORIDE
     Indication: Pneumonia
     Dosage: 0.4 G, QD
     Route: 048
     Dates: start: 20220124, end: 20220126
  4. NADROPARIN CALCIUM [Suspect]
     Active Substance: NADROPARIN CALCIUM
     Indication: Mesenteric vein thrombosis
     Dosage: 0.4 ML, BID
     Route: 058
     Dates: start: 20220119, end: 20220205

REACTIONS (3)
  - Platelet count decreased [Recovering/Resolving]
  - Underdose [None]
  - Prescribed underdose [None]

NARRATIVE: CASE EVENT DATE: 20220119
